FAERS Safety Report 22353000 (Version 4)
Quarter: 2025Q1

REPORT INFORMATION
  Report Type: Spontaneous
  Country: US (occurrence: US)
  Receive Date: 20230523
  Receipt Date: 20250316
  Transmission Date: 20250408
  Serious: Yes (Other)
  Sender: SANOFI AVENTIS
  Company Number: US-SA-SAC20230522000139

PATIENT
  Age: 15 Month
  Sex: Male

DRUGS (4)
  1. ELOCTATE [Suspect]
     Active Substance: EFMOROCTOCOG ALFA
     Indication: Haemorrhage
     Route: 042
  2. ELOCTATE [Suspect]
     Active Substance: EFMOROCTOCOG ALFA
     Indication: Haemorrhage
     Route: 042
  3. ELOCTATE [Suspect]
     Active Substance: EFMOROCTOCOG ALFA
     Route: 042
  4. ELOCTATE [Suspect]
     Active Substance: EFMOROCTOCOG ALFA
     Route: 042

REACTIONS (3)
  - Muscle haemorrhage [Recovered/Resolved]
  - Gingival bleeding [Unknown]
  - Ear infection [Unknown]

NARRATIVE: CASE EVENT DATE: 20230505
